FAERS Safety Report 22167081 (Version 1)
Quarter: 2023Q2

REPORT INFORMATION
  Report Type: Spontaneous
  Country: US (occurrence: None)
  Receive Date: 20230402
  Receipt Date: 20230402
  Transmission Date: 20230722
  Serious: Yes (Other)
  Sender: FDA-Public Use
  Company Number: None

PATIENT
  Age: 50 Year
  Sex: Female

DRUGS (4)
  1. HYDROCHLOROTHIAZIDE [Suspect]
     Active Substance: HYDROCHLOROTHIAZIDE
     Indication: Diuretic therapy
     Dosage: FREQUENCY : TWICE A DAY;?
     Route: 048
     Dates: start: 20211216
  2. HYDROXYZINE HYDROCHLORIDE [Concomitant]
     Active Substance: HYDROXYZINE HYDROCHLORIDE
     Dates: start: 20211216
  3. LEVOTHYROXINE [Concomitant]
     Active Substance: LEVOTHYROXINE
     Dates: start: 20211108
  4. BIMATOPROST [Concomitant]
     Active Substance: BIMATOPROST

REACTIONS (4)
  - Vision blurred [None]
  - Tachycardia [None]
  - Dizziness [None]
  - Blood pressure fluctuation [None]

NARRATIVE: CASE EVENT DATE: 20230327
